FAERS Safety Report 21234866 (Version 3)
Quarter: 2022Q3

REPORT INFORMATION
  Report Type: Report from Study
  Country: ZA (occurrence: ZA)
  Receive Date: 20220820
  Receipt Date: 20220830
  Transmission Date: 20221026
  Serious: Yes (Death, Other)
  Sender: FDA-Public Use
  Company Number: ZA-ABBVIE-22K-143-4510880-00

PATIENT
  Age: 71 Year
  Sex: Male
  Weight: 72 kg

DRUGS (2)
  1. VENCLEXTA [Suspect]
     Active Substance: VENETOCLAX
     Indication: Acute myeloid leukaemia
     Dosage: FREQUENCY-ONE CYCLE OF THERAPY
     Route: 048
     Dates: start: 20220610, end: 20220704
  2. AZACITIDINE [Concomitant]
     Active Substance: AZACITIDINE
     Indication: Product used for unknown indication
     Dosage: FREQUENCY-ONE CYCLE OF THERAPY

REACTIONS (3)
  - Pancytopenia [Fatal]
  - Neutropenic sepsis [Fatal]
  - Drug ineffective [Unknown]
